FAERS Safety Report 11078292 (Version 1)
Quarter: 2015Q2

REPORT INFORMATION
  Report Type: Spontaneous
  Country: US (occurrence: None)
  Receive Date: 20150429
  Receipt Date: 20150429
  Transmission Date: 20150821
  Serious: Yes (Disabling)
  Sender: FDA-Public Use
  Company Number: None

PATIENT
  Age: 67 Year
  Sex: Female
  Weight: 97.98 kg

DRUGS (11)
  1. ADVAIR HFA [Suspect]
     Active Substance: FLUTICASONE PROPIONATE\SALMETEROL XINAFOATE
     Indication: CHRONIC OBSTRUCTIVE PULMONARY DISEASE
     Dosage: 250/50
     Route: 055
     Dates: start: 20150329, end: 20150419
  2. ASPIRIN. [Concomitant]
     Active Substance: ASPIRIN
  3. SPIRVA [Concomitant]
  4. SPIRONOLACTONE. [Concomitant]
     Active Substance: SPIRONOLACTONE
  5. LASIX [Concomitant]
     Active Substance: FUROSEMIDE
  6. VITAMIN B12 [Concomitant]
     Active Substance: CYANOCOBALAMIN
  7. SIMVASTIN [Concomitant]
     Active Substance: SIMVASTATIN
  8. FLAXSEED [Concomitant]
     Active Substance: FLAX SEED
  9. COENZYME Q10 [Concomitant]
     Active Substance: UBIDECARENONE
  10. 1 A DAY [Concomitant]
  11. FISH OIL [Concomitant]
     Active Substance: FISH OIL

REACTIONS (12)
  - Fatigue [None]
  - Dizziness [None]
  - Dyspnoea [None]
  - Product quality issue [None]
  - Feeling of despair [None]
  - Oxygen saturation decreased [None]
  - Bradyphrenia [None]
  - Feeling abnormal [None]
  - Palpitations [None]
  - Burning sensation [None]
  - Product odour abnormal [None]
  - Hypertension [None]

NARRATIVE: CASE EVENT DATE: 20150417
